FAERS Safety Report 8831455 (Version 1)
Quarter: 2012Q4

REPORT INFORMATION
  Report Type: 
  Country: GB (occurrence: GB)
  Receive Date: 20121009
  Receipt Date: 20121009
  Transmission Date: 20130627
  Serious: Yes (Hospitalization)
  Sender: FDA-Public Use
  Company Number: GB-WATSON-2012-16918

PATIENT
  Age: 91 Year
  Sex: Female
  Weight: 50 kg

DRUGS (8)
  1. OMEPRAZOLE (UNKNOWN) [Suspect]
     Indication: PRODUCT USED FOR UNKNOWN INDICATION
     Dosage: 40 mg, daily
     Route: 048
     Dates: end: 20120910
  2. FOLIC ACID [Concomitant]
     Indication: PRODUCT USED FOR UNKNOWN INDICATION
     Route: 065
  3. THIAMINE [Concomitant]
     Indication: PRODUCT USED FOR UNKNOWN INDICATION
     Route: 065
  4. VITAMIN B EXTRA STRENGTH VITAMIN B COMPLEX [Concomitant]
     Indication: PRODUCT USED FOR UNKNOWN INDICATION
     Route: 065
  5. SANDO K                            /00031402/ [Concomitant]
     Indication: PRODUCT USED FOR UNKNOWN INDICATION
     Route: 065
  6. FLUDROCORTISONE [Concomitant]
     Indication: PRODUCT USED FOR UNKNOWN INDICATION
     Route: 065
  7. DALTEPARIN [Concomitant]
     Indication: PRODUCT USED FOR UNKNOWN INDICATION
     Route: 065
  8. LOPERAMIDE [Concomitant]
     Indication: PRODUCT USED FOR UNKNOWN INDICATION
     Route: 065

REACTIONS (3)
  - Hypomagnesaemia [Not Recovered/Not Resolved]
  - Fall [Unknown]
  - Atrial fibrillation [Unknown]
